FAERS Safety Report 9587518 (Version 1)
Quarter: 2013Q4

REPORT INFORMATION
  Report Type: Spontaneous
  Country: FR (occurrence: FR)
  Receive Date: 20131003
  Receipt Date: 20131003
  Transmission Date: 20140711
  Serious: Yes (Hospitalization)
  Sender: FDA-Public Use
  Company Number: FR-JNJFOC-20131000447

PATIENT
  Age: 44 Year
  Sex: Male

DRUGS (5)
  1. TOPALGIC [Suspect]
     Indication: APPENDICITIS
     Route: 048
     Dates: start: 20130721
  2. CEFOTAXIME [Suspect]
     Indication: APPENDICITIS
     Route: 042
     Dates: start: 20130721, end: 20130725
  3. FLAGYL [Suspect]
     Indication: APPENDICITIS
     Route: 042
     Dates: start: 20130721, end: 20130725
  4. INEXIUM [Suspect]
     Indication: PRODUCT USED FOR UNKNOWN INDICATION
     Route: 048
     Dates: start: 20130721, end: 20130725
  5. LOVENOX [Concomitant]
     Indication: PRODUCT USED FOR UNKNOWN INDICATION
     Route: 058
     Dates: start: 20130721

REACTIONS (1)
  - Leukopenia [Recovered/Resolved]
